FAERS Safety Report 4657019-5 (Version None)
Quarter: 2005Q2

REPORT INFORMATION
  Report Type: 
  Country: None (occurrence: None)
  Receive Date: 20050509
  Receipt Date: 20050421
  Transmission Date: 20051028
  Serious: Yes (Life-Threatening, Other)
  Sender: FDA-Public Use
  Company Number: 2005-DE-01550GD

PATIENT
  Age: 67 Year
  Sex: Female

DRUGS (5)
  1. MORPHINE [Suspect]
     Indication: POSTOPERATIVE ANALGESIA
     Dosage: SEE IMAGE
     Route: 042
  2. DESFLURANE (DESFLURANE) [Concomitant]
  3. REMIFENTANIL (REMIFENTANIL) [Concomitant]
  4. CISATRACRIUM (CISATRACURIUM) [Concomitant]
  5. ACEBUTOLOL [Concomitant]

REACTIONS (6)
  - BLOOD PRESSURE DECREASED [None]
  - LOSS OF CONSCIOUSNESS [None]
  - MEDICAL DEVICE COMPLICATION [None]
  - OVERDOSE [None]
  - RESPIRATORY ARREST [None]
  - RESUSCITATION [None]
